FAERS Safety Report 16134906 (Version 2)
Quarter: 2019Q2

REPORT INFORMATION
  Report Type: Spontaneous
  Country: ES (occurrence: ES)
  Receive Date: 20190329
  Receipt Date: 20190514
  Transmission Date: 20190711
  Serious: Yes (Other)
  Sender: FDA-Public Use
  Company Number: ES-AVERITAS PHARMA, INC.-2019-12783

PATIENT
  Age: 34 Year
  Sex: Female

DRUGS (1)
  1. QUTENZA [Suspect]
     Active Substance: CAPSAICIN
     Indication: COMPLEX REGIONAL PAIN SYNDROME
     Dosage: 1 DF, UNK
     Route: 003
     Dates: start: 20190204, end: 20190204

REACTIONS (4)
  - Application site pain [Recovered/Resolved]
  - Application site erythema [Recovered/Resolved]
  - Pyrexia [Recovered/Resolved]
  - Application site burn [Recovered/Resolved]

NARRATIVE: CASE EVENT DATE: 20190204
